FAERS Safety Report 5807068-6 (Version None)
Quarter: 2008Q3

REPORT INFORMATION
  Report Type: 
  Country: None (occurrence: None)
  Receive Date: 20080711
  Receipt Date: 20080501
  Transmission Date: 20090109
  Serious: No
  Sender: FDA-Public Use
  Company Number: US-BAYER-200821615NA

PATIENT
  Age: 23 Year
  Sex: Female
  Weight: 65 kg

DRUGS (1)
  1. MIRENA [Suspect]
     Indication: CONTRACEPTION
     Route: 015
     Dates: start: 20080107

REACTIONS (4)
  - ABDOMINAL TENDERNESS [None]
  - MENORRHAGIA [None]
  - PELVIC PAIN [None]
  - UROGENITAL HAEMORRHAGE [None]
